FAERS Safety Report 7850154-X (Version None)
Quarter: 2011Q4

REPORT INFORMATION
  Report Type: 
  Country: None (occurrence: None)
  Receive Date: 20111021
  Receipt Date: 20111014
  Transmission Date: 20120403
  Serious: Yes (Hospitalization, Other)
  Sender: FDA-Public Use
  Company Number: AUR-APL-2011-05472

PATIENT
  Age: 23 Year
  Sex: Female
  Weight: 68 kg

DRUGS (6)
  1. TORSEMIDE [Suspect]
     Indication: GLOMERULONEPHRITIS
     Dosage: (10 MG, 1 D), ORAL
     Route: 048
     Dates: start: 20101031
  2. CYCLOSPORINE [Suspect]
     Indication: GLOMERULONEPHRITIS
     Dosage: 300 MG (150 MG, 2 IN 1 D), ORAL
     Route: 048
     Dates: start: 20091031
  3. ENOXAPARIN SODIUM [Concomitant]
  4. PREDNISOLONE [Concomitant]
  5. RAMIPRIL [Suspect]
     Indication: GLOMERULONEPHRITIS
     Dosage: (5 MG, 1 D), ORAL
     Route: 048
     Dates: start: 20101031
  6. FALITHROM (PHENPROCOUMON) [Suspect]
     Indication: PULMONARY EMBOLISM
     Dosage: 6 MG (3 MG, 2 IN 1 D), ORAL
     Route: 048
     Dates: start: 20091031

REACTIONS (5)
  - DEEP VEIN THROMBOSIS [None]
  - MATERNAL EXPOSURE DURING PREGNANCY [None]
  - PREGNANCY [None]
  - PULMONARY EMBOLISM [None]
  - ABORTION INDUCED [None]
